FAERS Safety Report 26042035 (Version 1)
Quarter: 2025Q4

REPORT INFORMATION
  Report Type: Spontaneous
  Country: US (occurrence: US)
  Receive Date: 20251113
  Receipt Date: 20251113
  Transmission Date: 20260118
  Serious: No
  Sender: GILEAD
  Company Number: US-GILEAD-2025-0735945

PATIENT
  Age: 5 Decade
  Sex: Female

DRUGS (1)
  1. LIVDELZI [Suspect]
     Active Substance: SELADELPAR LYSINE
     Indication: Product used for unknown indication
     Dosage: UNK
     Route: 065

REACTIONS (2)
  - Blood bilirubin increased [Recovering/Resolving]
  - Pruritus [Recovering/Resolving]
